FAERS Safety Report 9981142 (Version 1)
Quarter: 2014Q1

REPORT INFORMATION
  Report Type: Spontaneous
  Country: CA (occurrence: CA)
  Receive Date: 20140307
  Receipt Date: 20140307
  Transmission Date: 20141002
  Serious: Yes (Hospitalization)
  Sender: FDA-Public Use
  Company Number: CA-009507513-1403CAN001840

PATIENT
  Age: 4 Year
  Sex: Male

DRUGS (3)
  1. SINGULAIR [Suspect]
     Indication: ASTHMA
     Dosage: 4 MG, UNK
     Dates: start: 2012
  2. FLOVENT [Concomitant]
     Dosage: UNK, BID
     Dates: start: 2012
  3. VENTOLIN (ALBUTEROL SULFATE) [Concomitant]
     Dosage: UNK, PRN

REACTIONS (5)
  - Asthma [Unknown]
  - Sleep disorder [Not Recovered/Not Resolved]
  - Aggression [Not Recovered/Not Resolved]
  - Insomnia [Not Recovered/Not Resolved]
  - Irritability [Not Recovered/Not Resolved]
